FAERS Safety Report 26117914 (Version 1)
Quarter: 2025Q4

REPORT INFORMATION
  Report Type: Spontaneous
  Country: US (occurrence: None)
  Receive Date: 20251203
  Receipt Date: 20251203
  Transmission Date: 20260118
  Serious: Yes (Hospitalization)
  Sender: FDA-CTU
  Company Number: None

PATIENT
  Age: 40 Year
  Sex: Female

DRUGS (6)
  1. TACROLIMUS [Suspect]
     Active Substance: TACROLIMUS
     Indication: Immunosuppression
     Dosage: FREQUENCY : TWICE A DAY;?
     Route: 048
     Dates: start: 20150922
  2. MYCOPHENOLIC ACID [Suspect]
     Active Substance: MYCOPHENOLIC ACID
     Indication: Immunosuppression
     Dosage: FREQUENCY : TWICE A DAY;?
     Route: 048
     Dates: start: 20150922
  3. METHENAMINE [Concomitant]
     Active Substance: METHENAMINE
     Dates: start: 20250911
  4. PREDNISONE [Concomitant]
     Active Substance: PREDNISONE
     Dates: start: 20240111
  5. ROSUVASTATIN [Concomitant]
     Active Substance: ROSUVASTATIN
     Dates: start: 20240715
  6. warfarin 10mg [Concomitant]
     Dates: start: 20240111

REACTIONS (1)
  - Kidney transplant rejection [None]

NARRATIVE: CASE EVENT DATE: 20251123
